FAERS Safety Report 15551472 (Version 4)
Quarter: 2020Q1

REPORT INFORMATION
  Report Type: Report from Study
  Country: US (occurrence: US)
  Receive Date: 20181025
  Receipt Date: 20200306
  Transmission Date: 20200409
  Serious: Yes (Hospitalization, Other)
  Sender: FDA-Public Use
  Company Number: US-EMD SERONO-E2B_90062679

PATIENT
  Age: 64 Year
  Sex: Male

DRUGS (1)
  1. REBIF [Suspect]
     Active Substance: INTERFERON BETA-1A
     Indication: MULTIPLE SCLEROSIS
     Route: 058
     Dates: start: 20090209

REACTIONS (9)
  - Renal impairment [Unknown]
  - Chest discomfort [Unknown]
  - Spinal cord infection [Recovered/Resolved]
  - Muscle tightness [Unknown]
  - Back pain [Unknown]
  - Dyspnoea [Unknown]
  - Gait disturbance [Unknown]
  - Thoracic spinal stenosis [Recovered/Resolved]
  - Mobility decreased [Unknown]

NARRATIVE: CASE EVENT DATE: 2017
